FAERS Safety Report 8228221-0 (Version None)
Quarter: 2012Q1

REPORT INFORMATION
  Report Type: 
  Country: None (occurrence: None)
  Receive Date: 20120322
  Receipt Date: 20111202
  Transmission Date: 20120608
  Serious: Yes (Other)
  Sender: FDA-Public Use
  Company Number: US-BRISTOL-MYERS SQUIBB COMPANY-16251894

PATIENT
  Age: 61 Year
  Sex: Male
  Weight: 86 kg

DRUGS (1)
  1. ERBITUX [Suspect]
     Dosage: 5-6 WEEKS AGO
     Route: 042

REACTIONS (4)
  - SKIN DISORDER [None]
  - STOMATITIS [None]
  - HYPERSENSITIVITY [None]
  - RASH [None]
